FAERS Safety Report 24529320 (Version 1)
Quarter: 2024Q4

REPORT INFORMATION
  Report Type: Spontaneous
  Country: US (occurrence: None)
  Receive Date: 20241018
  Receipt Date: 20241018
  Transmission Date: 20250115
  Serious: Yes (unspecified)
  Sender: Public
  Company Number: None

PATIENT
  Age: 56 Year
  Sex: Female
  Weight: 126.45 kg

DRUGS (17)
  1. OZEMPIC [Suspect]
     Active Substance: SEMAGLUTIDE
     Indication: Type 2 diabetes mellitus
     Dosage: OTHER QUANTITY : 0.5 INJECTION(S);?OTHER FREQUENCY : ONCE A WEEK;?
     Route: 058
     Dates: start: 20240807, end: 20241009
  2. Trilegy elipic, [Concomitant]
  3. abruterol Hfa [Concomitant]
  4. FUROSEMIDE [Concomitant]
     Active Substance: FUROSEMIDE
  5. gavapenton [Concomitant]
  6. topinarol [Concomitant]
  7. meipinel 2% [Concomitant]
  8. METFORMIN [Concomitant]
     Active Substance: METFORMIN HYDROCHLORIDE
  9. meproprol [Concomitant]
  10. VITAMIN D NOS [Concomitant]
     Active Substance: CHOLECALCIFEROL\ERGOCALCIFEROL
  11. sertralein [Concomitant]
  12. cetrazine [Concomitant]
  13. orenica [Concomitant]
  14. PANTOPRAZOLE SODIUM [Concomitant]
     Active Substance: PANTOPRAZOLE SODIUM
  15. AZELASTINE. [Concomitant]
     Active Substance: AZELASTINE HYDROCHLORIDE
  16. Fluticacone [Concomitant]
  17. Oxagen loop recorder [Concomitant]

REACTIONS (6)
  - Abdominal pain upper [None]
  - Eructation [None]
  - Diarrhoea [None]
  - Flatulence [None]
  - Near death experience [None]
  - Nausea [None]

NARRATIVE: CASE EVENT DATE: 20240918
